APPROVED DRUG PRODUCT: SYMJEPI
Active Ingredient: EPINEPHRINE
Strength: 0.3MG/0.3ML (0.3MG/0.3ML)
Dosage Form/Route: SOLUTION;INTRAMUSCULAR, SUBCUTANEOUS
Application: N207534 | Product #001
Applicant: ADAMIS PHARMACEUTICALS CORP
Approved: Jun 15, 2017 | RLD: Yes | RS: Yes | Type: RX

PATENTS:
Patent 11141540 | Expires: Oct 20, 2036